FAERS Safety Report 5362379-6 (Version None)
Quarter: 2007Q2

REPORT INFORMATION
  Report Type: 
  Country: None (occurrence: None)
  Receive Date: 20070619
  Receipt Date: 20070618
  Transmission Date: 20071010
  Serious: Yes (Hospitalization)
  Sender: FDA-Public Use
  Company Number: FR-BRISTOL-MYERS SQUIBB COMPANY-13786876

PATIENT
  Age: 61 Year
  Sex: Male

DRUGS (6)
  1. PERFALGAN IV [Suspect]
     Indication: ARTHRALGIA
     Dosage: 10 MG/ML- SOLUTION FOR INFUSION; DOSAGE UNKNOWN
     Route: 042
     Dates: end: 20070417
  2. COAPROVEL [Suspect]
     Indication: HYPERTENSION
     Route: 048
     Dates: end: 20070410
  3. ORBENIN CAP [Suspect]
     Dates: start: 20070404, end: 20070417
  4. RIFADIN [Suspect]
     Indication: ARTHRITIS BACTERIAL
     Dates: start: 20070404, end: 20070413
  5. GENTALLINE [Suspect]
     Indication: ARTHRITIS BACTERIAL
     Dates: start: 20070404, end: 20070410
  6. VOLTAREN [Suspect]
     Indication: ARTHRALGIA
     Dates: end: 20070410

REACTIONS (3)
  - RENAL FAILURE ACUTE [None]
  - THROMBOCYTOPENIA [None]
  - TOXIC SKIN ERUPTION [None]
